FAERS Safety Report 8820318 (Version 3)
Quarter: 2013Q2

REPORT INFORMATION
  Report Type: Spontaneous
  Country: US (occurrence: US)
  Receive Date: 20121002
  Receipt Date: 20130612
  Transmission Date: 20140414
  Serious: No
  Sender: FDA-Public Use
  Company Number: US-009507513-1209USA011160

PATIENT
  Age: 37 Year
  Sex: Female
  Weight: 69.39 kg

DRUGS (2)
  1. FOLLISTIM AQ CARTRIDGE [Suspect]
     Indication: IN VITRO FERTILISATION
     Dosage: 225 IU, QD
     Route: 058
     Dates: start: 20120922, end: 20120930
  2. FOLLISTIM AQ CARTRIDGE [Suspect]
     Indication: INFERTILITY

REACTIONS (4)
  - Drug dose omission [Unknown]
  - Product quality issue [Unknown]
  - No adverse event [Unknown]
  - Maternal exposure during pregnancy [Unknown]
